FAERS Safety Report 7585278-8 (Version None)
Quarter: 2011Q2

REPORT INFORMATION
  Report Type: 
  Country: None (occurrence: None)
  Receive Date: 20110531
  Receipt Date: 20101209
  Transmission Date: 20111010
  Serious: Yes (Other)
  Sender: FDA-Public Use
  Company Number: WAES 1012USA02020

PATIENT
  Age: 62 Year
  Sex: Male
  Weight: 105.2345 kg

DRUGS (4)
  1. ASPIRIN [Concomitant]
  2. ATENOLOL [Concomitant]
  3. JANUMET [Suspect]
     Indication: DIABETES MELLITUS
     Dosage: 500MG/50 MG/BID /PO
     Route: 048
     Dates: start: 20100801, end: 20101101
  4. SIMVASTATIN [Concomitant]

REACTIONS (1)
  - PANCREATITIS [None]
